FAERS Safety Report 6998911-6 (Version None)
Quarter: 2010Q3

REPORT INFORMATION
  Report Type: 
  Country: None (occurrence: None)
  Receive Date: 20100920
  Receipt Date: 20100517
  Transmission Date: 20110219
  Serious: Yes (Hospitalization)
  Sender: FDA-Public Use
  Company Number: US-ASTRAZENECA-2009SE15953

PATIENT
  Sex: Female

DRUGS (3)
  1. SEROQUEL [Suspect]
     Indication: SLEEP DISORDER
     Dosage: 50 MG TO 100 MG
     Route: 048
     Dates: start: 20041007
  2. LITHIUM CARBONATE [Concomitant]
     Route: 048
     Dates: start: 20041007
  3. REMERON [Concomitant]
     Route: 048
     Dates: start: 20041028

REACTIONS (2)
  - DIABETES MELLITUS [None]
  - OVERDOSE [None]
